FAERS Safety Report 5332270-X (Version None)
Quarter: 2007Q2

REPORT INFORMATION
  Report Type: 
  Country: None (occurrence: None)
  Receive Date: 20070523
  Receipt Date: 20070517
  Transmission Date: 20071010
  Serious: Yes (Disabling, Other)
  Sender: FDA-Public Use
  Company Number: US-BAYER-200616860BWH

PATIENT
  Age: 54 Year
  Sex: Female
  Weight: 56 kg

DRUGS (2)
  1. AVELOX [Suspect]
     Indication: SINUSITIS
     Dosage: TOTAL DAILY DOSE: 400 MG  UNIT DOSE: 400 MG
     Route: 048
     Dates: start: 20060424, end: 20060503
  2. LEVOTHYROXINE SODIUM [Concomitant]
     Indication: AUTOIMMUNE THYROIDITIS
     Route: 048

REACTIONS (41)
  - ABASIA [None]
  - ABDOMINAL DISCOMFORT [None]
  - ABDOMINAL PAIN [None]
  - ALOPECIA [None]
  - ANGIOEDEMA [None]
  - ARTHRALGIA [None]
  - ARTHRITIS [None]
  - BACK PAIN [None]
  - BLINDNESS UNILATERAL [None]
  - CONTUSION [None]
  - DIPLOPIA [None]
  - DYSSTASIA [None]
  - EYE IRRITATION [None]
  - EYE MOVEMENT DISORDER [None]
  - EYE SWELLING [None]
  - GENERAL PHYSICAL HEALTH DETERIORATION [None]
  - HAEMATOCRIT DECREASED [None]
  - HEADACHE [None]
  - HYPOAESTHESIA [None]
  - LIMB DISCOMFORT [None]
  - LOCAL SWELLING [None]
  - MIGRAINE [None]
  - MOBILITY DECREASED [None]
  - MUSCLE SPASMS [None]
  - NAIL DISORDER [None]
  - OEDEMA PERIPHERAL [None]
  - PAIN [None]
  - PAIN IN EXTREMITY [None]
  - PRURITUS [None]
  - RASH [None]
  - SENSATION OF HEAVINESS [None]
  - SKIN LESION [None]
  - SLEEP DISORDER [None]
  - SWELLING [None]
  - SWELLING FACE [None]
  - TENDON PAIN [None]
  - TENDONITIS [None]
  - URTICARIA [None]
  - URTICARIA LOCALISED [None]
  - VISION BLURRED [None]
  - WEIGHT INCREASED [None]
